FAERS Safety Report 25680194 (Version 1)
Quarter: 2025Q3

REPORT INFORMATION
  Report Type: Spontaneous
  Country: EU (occurrence: EU)
  Receive Date: 20250814
  Receipt Date: 20250814
  Transmission Date: 20251020
  Serious: Yes (Hospitalization, Other)
  Sender: TEVA
  Company Number: None

PATIENT
  Age: 64 Year

DRUGS (6)
  1. PACLITAXEL [Suspect]
     Active Substance: PACLITAXEL
     Indication: Non-small cell lung cancer
     Dosage: DOSE : SEE DESCRIBE EVENT SECTION; FREQ : SEE DESCRIBE EVENT SECTION
     Route: 065
     Dates: start: 20230512, end: 20230602
  2. YERVOY [Suspect]
     Active Substance: IPILIMUMAB
     Indication: Squamous cell carcinoma
     Route: 065
     Dates: start: 20230623
  3. YERVOY [Suspect]
     Active Substance: IPILIMUMAB
     Indication: Squamous cell carcinoma
     Route: 065
     Dates: start: 20230512, end: 202308
  4. CARBOPLATIN [Suspect]
     Active Substance: CARBOPLATIN
     Indication: Squamous cell carcinoma
     Dosage: 5 AUC EVERY 3 WEEKS
     Route: 065
     Dates: start: 20230512, end: 20230602
  5. OPDIVO [Suspect]
     Active Substance: NIVOLUMAB
     Indication: Squamous cell carcinoma
     Route: 065
     Dates: start: 20230512, end: 202308
  6. OPDIVO [Suspect]
     Active Substance: NIVOLUMAB
     Indication: Squamous cell carcinoma
     Route: 065
     Dates: start: 20230623

REACTIONS (1)
  - Immune-mediated lung disease [Recovered/Resolved]

NARRATIVE: CASE EVENT DATE: 20230808
